FAERS Safety Report 5814554-1 (Version None)
Quarter: 2008Q3

REPORT INFORMATION
  Report Type: 
  Country: None (occurrence: None)
  Receive Date: 20080718
  Receipt Date: 20070803
  Transmission Date: 20090109
  Serious: No
  Sender: FDA-Public Use
  Company Number: US-KINGPHARMUSA00001-K200700996

PATIENT

DRUGS (7)
  1. LEVOXYL [Suspect]
     Indication: HORMONE REPLACEMENT THERAPY
     Dosage: 25 MCG, SINGLE
     Route: 048
     Dates: start: 20070803, end: 20070804
  2. LABETALOL HCL [Concomitant]
     Indication: BLOOD PRESSURE INCREASED
     Dosage: 50 MG, TID
     Route: 048
  3. ATACAND [Concomitant]
     Indication: BLOOD PRESSURE INCREASED
     Dosage: 4 MG, QD
     Route: 048
  4. FLOVENT [Concomitant]
     Dosage: ONE PUFF, QD
  5. NASACORT AQ [Concomitant]
     Dosage: ONE PUFF EACH NOSTRIL, QD
  6. IRON SULFATETHIAMIN COMPOUND TAB [Concomitant]
     Indication: ANAEMIA
     Dosage: 350 MG, QD
     Route: 048
  7. VITAMIN C /00008001/ [Concomitant]
     Indication: VITAMIN SUPPLEMENTATION
     Dosage: 500 MG, QD
     Route: 048

REACTIONS (3)
  - DYSPNOEA [None]
  - PHARYNGEAL DISORDER [None]
  - PHARYNGEAL OEDEMA [None]
